FAERS Safety Report 7183391-0 (Version None)
Quarter: 2010Q4

REPORT INFORMATION
  Report Type: 
  Country: None (occurrence: None)
  Receive Date: 20101220
  Receipt Date: 20101220
  Transmission Date: 20110411
  Serious: Yes (Hospitalization)
  Sender: FDA-Public Use
  Company Number: None

PATIENT
  Age: 77 Year
  Sex: Female
  Weight: 77.5 kg

DRUGS (15)
  1. MACRODANTIN [Suspect]
     Indication: URINARY TRACT INFECTION
     Dosage: 100 MG BID PO RECENT
     Route: 048
  2. ACTOS [Concomitant]
  3. ATACAND [Concomitant]
  4. NORCO [Concomitant]
  5. AMARYL [Concomitant]
  6. METFORMIN [Concomitant]
  7. CELEXA [Concomitant]
  8. CYTOMEL [Concomitant]
  9. LEVOTHYROXINE [Concomitant]
  10. NORVASC [Concomitant]
  11. LOPID [Concomitant]
  12. HYDROCHLOROTHIAZIDE [Concomitant]
  13. XANAX [Concomitant]
  14. FLECAINIDE [Concomitant]
  15. LOPRESSOR [Concomitant]

REACTIONS (2)
  - PULMONARY TOXICITY [None]
  - RESPIRATORY FAILURE [None]
